FAERS Safety Report 9994116 (Version 1)
Quarter: 2014Q1

REPORT INFORMATION
  Report Type: Spontaneous
  Country: US (occurrence: US)
  Receive Date: 20140310
  Receipt Date: 20140310
  Transmission Date: 20141002
  Serious: No
  Sender: FDA-Public Use
  Company Number: US-AMGEN-USASP2014005734

PATIENT
  Age: 56 Year
  Sex: Female

DRUGS (1)
  1. SENSIPAR [Suspect]
     Indication: BLOOD CALCIUM INCREASED
     Dosage: 60 MG, UNK
     Route: 048
     Dates: start: 20140115

REACTIONS (3)
  - Blood calcium abnormal [Recovering/Resolving]
  - Blood magnesium decreased [Recovered/Resolved]
  - Diarrhoea [Recovering/Resolving]
